FAERS Safety Report 12110515 (Version 2)
Quarter: 2016Q1

REPORT INFORMATION
  Report Type: Spontaneous
  Country: FR (occurrence: FR)
  Receive Date: 20160224
  Receipt Date: 20160311
  Transmission Date: 20160526
  Serious: Yes (Hospitalization, Other)
  Sender: FDA-Public Use
  Company Number: FR-PFIZER INC-2016099889

PATIENT
  Age: 89 Year
  Sex: Female

DRUGS (16)
  1. ACTISKENAN [Suspect]
     Active Substance: MORPHINE SULFATE
     Dosage: 35 MG, DAILY
     Route: 048
  2. DRIPTANE [Suspect]
     Active Substance: OXYBUTYNIN
     Dosage: UNK
     Route: 048
  3. INEXIUM [Suspect]
     Active Substance: ESOMEPRAZOLE
     Dosage: UNK
     Route: 048
  4. BISOCE [Suspect]
     Active Substance: BISOPROLOL
     Dosage: 2.5 MG, 1X/DAY
     Route: 048
  5. LASILIX [Concomitant]
     Active Substance: FUROSEMIDE
  6. TRIMEBUTINE [Concomitant]
     Active Substance: TRIMEBUTINE
  7. PREVISCAN [Concomitant]
     Active Substance: FLUINDIONE
  8. LYRICA [Suspect]
     Active Substance: PREGABALIN
     Dosage: 50 MG, 2X/DAY
     Route: 048
  9. ACTISKENAN [Suspect]
     Active Substance: MORPHINE SULFATE
     Dosage: 10 MG IN THE MORNING, 20 MG IN THE EVENING, AND 5 MG IF NEEDED
     Route: 048
  10. NEFOPAM HYDROCHLORIDE [Suspect]
     Active Substance: NEFOPAM HYDROCHLORIDE
  11. DAFALGAN [Concomitant]
     Active Substance: ACETAMINOPHEN
  12. DIFFU K [Concomitant]
     Active Substance: POTASSIUM CHLORIDE
  13. PYOSTACINE [Concomitant]
     Active Substance: PRISTINAMYCIN
  14. ZYMAD [Concomitant]
     Active Substance: CHOLECALCIFEROL
  15. DUROGESIC [Suspect]
     Active Substance: FENTANYL
     Route: 062
  16. TRANSIPEG [Concomitant]
     Active Substance: POLYETHYLENE GLYCOL 3350

REACTIONS (4)
  - Cerebral haemorrhage [Unknown]
  - Fall [Recovered/Resolved with Sequelae]
  - Confusional state [Unknown]
  - Incoherent [Unknown]

NARRATIVE: CASE EVENT DATE: 20160129
